FAERS Safety Report 14143878 (Version 1)
Quarter: 2017Q4

REPORT INFORMATION
  Report Type: Spontaneous
  Country: US (occurrence: US)
  Receive Date: 20171031
  Receipt Date: 20171031
  Transmission Date: 20180321
  Serious: No
  Sender: FDA-Public Use
  Company Number: US-B.I. PHARMACEUTICALS,INC./RIDGEFIELD-2017-BI-057742

PATIENT
  Sex: Female

DRUGS (1)
  1. JARDIANCE [Suspect]
     Active Substance: EMPAGLIFLOZIN
     Indication: TYPE 2 DIABETES MELLITUS
     Dosage: STRENGTH: 10 MG; FORMULATION: TABLET; ADMINISTRATION CORRECT? YES; ACTION TAKEN: DRUG WITHDRAWN
     Route: 048
     Dates: start: 2017, end: 201710

REACTIONS (6)
  - Mucous membrane disorder [Recovered/Resolved]
  - Peripheral swelling [Recovered/Resolved]
  - Malaise [Recovered/Resolved]
  - Pleural effusion [Recovered/Resolved]
  - Incontinence [Recovered/Resolved]
  - Diarrhoea [Not Recovered/Not Resolved]

NARRATIVE: CASE EVENT DATE: 2017
